FAERS Safety Report 9056256 (Version 2)
Quarter: 2013Q1

REPORT INFORMATION
  Report Type: Spontaneous
  Country: JP (occurrence: JP)
  Receive Date: 20130205
  Receipt Date: 20130219
  Transmission Date: 20140127
  Serious: Yes (Life-Threatening)
  Sender: FDA-Public Use
  Company Number: JP-AMGEN-JPNSP2013007749

PATIENT
  Age: 65 Year
  Sex: Male
  Weight: 83 kg

DRUGS (4)
  1. VECTIBIX [Suspect]
     Indication: MALIGNANT ASCITES
     Dosage: 450 MG, Q3WK
     Route: 041
     Dates: start: 20121205, end: 20130109
  2. TS-1 [Concomitant]
     Indication: RECURRENT CANCER
     Dosage: 120 MG, UNK
     Route: 048
     Dates: start: 20121114
  3. OXALIPLATIN [Concomitant]
     Indication: RECURRENT CANCER
     Dosage: 240 MG, Q3WK
     Route: 041
     Dates: start: 20121114
  4. JANUVIA [Concomitant]
     Indication: DIABETES MELLITUS
     Dosage: UNK
     Route: 048

REACTIONS (1)
  - Anaphylactic shock [Recovered/Resolved]
